FAERS Safety Report 4971596-6 (Version None)
Quarter: 2006Q2

REPORT INFORMATION
  Report Type: 
  Country: None (occurrence: None)
  Receive Date: 20060406
  Receipt Date: 20060330
  Transmission Date: 20061013
  Serious: Yes (Other)
  Sender: FDA-Public Use
  Company Number: 2005135291

PATIENT
  Age: 47 Year
  Sex: Male

DRUGS (2)
  1. MEDROL [Suspect]
     Indication: MUSCULOSKELETAL STIFFNESS
     Dosage: 8 MG (8 MG, 1 IN 1 D); ORAL
     Route: 048
     Dates: start: 19930101
  2. MINITRAN (GLYCERYL TRINITRATE) [Concomitant]

REACTIONS (19)
  - ADRENAL INSUFFICIENCY [None]
  - CATARACT [None]
  - DEPRESSION [None]
  - DRUG DEPENDENCE [None]
  - IMPAIRED HEALING [None]
  - INCREASED APPETITE [None]
  - INCREASED TENDENCY TO BRUISE [None]
  - LIBIDO DECREASED [None]
  - MASS [None]
  - MICTURITION URGENCY [None]
  - MUSCLE SPASMS [None]
  - NAIL DYSTROPHY [None]
  - ONYCHOMYCOSIS [None]
  - PHARMACEUTICAL PRODUCT COMPLAINT [None]
  - PRURITUS [None]
  - RHEUMATOID ARTHRITIS [None]
  - SCHIZOPHRENIA [None]
  - SUICIDAL IDEATION [None]
  - TOOTH DISORDER [None]
